FAERS Safety Report 10075832 (Version 2)
Quarter: 2014Q4

REPORT INFORMATION
  Report Type: Spontaneous
  Country: US (occurrence: US)
  Receive Date: 20140414
  Receipt Date: 20141201
  Transmission Date: 20150528
  Serious: Yes (Congenital Anomaly, Other)
  Sender: FDA-Public Use
  Company Number: US-ELI_LILLY_AND_COMPANY-US201404001915

PATIENT

DRUGS (1)
  1. PROZAC [Suspect]
     Active Substance: FLUOXETINE HYDROCHLORIDE
     Indication: PRODUCT USED FOR UNKNOWN INDICATION
     Dosage: UNK, UNKNOWN
     Route: 064

REACTIONS (9)
  - Talipes [Unknown]
  - Foetal exposure during pregnancy [Recovered/Resolved with Sequelae]
  - Autism [Unknown]
  - Haematoma [Unknown]
  - Contusion [Unknown]
  - Head injury [Unknown]
  - Deafness [Unknown]
  - Tympanic membrane perforation [Unknown]
  - Abnormal behaviour [Unknown]
